FAERS Safety Report 7573505-2 (Version None)
Quarter: 2011Q2

REPORT INFORMATION
  Report Type: 
  Country: None (occurrence: None)
  Receive Date: 20110621
  Receipt Date: 20110602
  Transmission Date: 20111010
  Serious: No
  Sender: FDA-Public Use
  Company Number: 20110446

PATIENT
  Age: 15 Year
  Sex: Male

DRUGS (6)
  1. SEVOFLURANE [Suspect]
     Indication: INDUCTION OF ANAESTHESIA
  2. ONDANSETRON [Suspect]
     Indication: ANTIEMETIC SUPPORTIVE CARE
  3. PANCURONIUM BROMIDE [Suspect]
     Dosage: NASAL
     Route: 045
  4. ISOFLURANE [Suspect]
     Indication: INDUCTION OF ANAESTHESIA
  5. UNSPECIFIED ACTEYLCHOLINESTAERASE INHIBITOR [Suspect]
  6. UNSPECIFIED CHOLINERGIC RECEPTOR AGONIST [Suspect]

REACTIONS (2)
  - ARRHYTHMIA [None]
  - TACHYCARDIA [None]
